FAERS Safety Report 6774531-3 (Version None)
Quarter: 2010Q2

REPORT INFORMATION
  Report Type: 
  Country: None (occurrence: None)
  Receive Date: 20100617
  Receipt Date: 20100614
  Transmission Date: 20101027
  Serious: Yes (Death)
  Sender: FDA-Public Use
  Company Number: PHHY2010US38886

PATIENT
  Sex: Female
  Weight: 37.642 kg

DRUGS (1)
  1. EXJADE [Suspect]
     Dosage: 1250 MG, PER DAY
     Route: 048
     Dates: start: 20071210, end: 20100401

REACTIONS (1)
  - DEATH [None]
